FAERS Safety Report 4491239-8 (Version None)
Quarter: 2004Q4

REPORT INFORMATION
  Report Type: 
  Country: None (occurrence: None)
  Receive Date: 20041101
  Receipt Date: 20041101
  Transmission Date: 20050328
  Serious: Yes (Hospitalization)
  Sender: FDA-Public Use
  Company Number: None

PATIENT
  Age: 69 Year
  Sex: Male
  Weight: 73.0291 kg

DRUGS (3)
  1. CISPLATIN [Suspect]
     Indication: LARYNGEAL CANCER
     Dosage: 100 MG/M2 IV
     Route: 042
     Dates: start: 20040907
  2. CISPLATIN [Suspect]
     Indication: LARYNGEAL CANCER
     Dosage: 100 MG/M2 IV
     Route: 042
     Dates: start: 20040928
  3. CISPLATIN [Suspect]
     Indication: LARYNGEAL CANCER
     Dosage: 100 MG/M2 IV
     Route: 042
     Dates: start: 20041019

REACTIONS (5)
  - ANAEMIA [None]
  - ATELECTASIS [None]
  - PNEUMONIA [None]
  - PRODUCTIVE COUGH [None]
  - SPUTUM DISCOLOURED [None]
